FAERS Safety Report 14355844 (Version 3)
Quarter: 2018Q1

REPORT INFORMATION
  Report Type: Spontaneous
  Country: FR (occurrence: FR)
  Receive Date: 20180105
  Receipt Date: 20180109
  Transmission Date: 20180509
  Serious: Yes (Hospitalization, Other)
  Sender: FDA-Public Use
  Company Number: FR-PFIZER INC-2018001072

PATIENT
  Age: 61 Year
  Sex: Female
  Weight: 74 kg

DRUGS (6)
  1. BISOPROLOL HEMIFUMARATE [Suspect]
     Active Substance: BISOPROLOL FUMARATE
     Dosage: UNK
     Route: 048
  2. BACTRIM [Suspect]
     Active Substance: SULFAMETHOXAZOLE\TRIMETHOPRIM
     Dosage: UNK
     Route: 048
  3. AMIODARONE HCL [Suspect]
     Active Substance: AMIODARONE HYDROCHLORIDE
     Dosage: UNK
     Route: 048
  4. LANSOPRAZOLE. [Suspect]
     Active Substance: LANSOPRAZOLE
     Dosage: UNK
     Route: 048
  5. ATORVASTATIN CALCIUM. [Suspect]
     Active Substance: ATORVASTATIN CALCIUM
     Dosage: UNK
     Route: 048
  6. CELLCEPT [Suspect]
     Active Substance: MYCOPHENOLATE MOFETIL\MYCOPHENOLATE MOFETIL HYDROCHLORIDE
     Indication: HEART TRANSPLANT
     Dosage: UNK
     Route: 048
     Dates: start: 2017, end: 20171124

REACTIONS (1)
  - Interstitial lung disease [Unknown]

NARRATIVE: CASE EVENT DATE: 201711
